FAERS Safety Report 8145849-7 (Version None)
Quarter: 2012Q1

REPORT INFORMATION
  Report Type: 
  Country: None (occurrence: None)
  Receive Date: 20120217
  Receipt Date: 20110512
  Transmission Date: 20120608
  Serious: No
  Sender: FDA-Public Use
  Company Number: US-ABBOTT-11P-163-0725000-00

PATIENT
  Sex: Male
  Weight: 102.15 kg

DRUGS (7)
  1. SIMCOR [Suspect]
     Indication: BLOOD TRIGLYCERIDES INCREASED
     Dosage: 1 - 500/20MG TAB DAILY
     Dates: start: 20110505
  2. MICARDIS [Concomitant]
     Indication: HYPERTENSION
  3. ACTOS [Concomitant]
     Indication: DIABETES MELLITUS
  4. ASPIRIN [Concomitant]
     Indication: FLUSHING
     Dates: start: 20110505
  5. ASPIRIN [Concomitant]
     Indication: PROPHYLAXIS
  6. ZIAC [Concomitant]
     Indication: PRODUCT USED FOR UNKNOWN INDICATION
  7. BETAPACE [Concomitant]
     Indication: ARRHYTHMIA

REACTIONS (4)
  - BLOOD URINE PRESENT [None]
  - POLLAKIURIA [None]
  - DYSURIA [None]
  - BACK PAIN [None]
